FAERS Safety Report 8795287 (Version 2)
Quarter: 2013Q3

REPORT INFORMATION
  Report Type: Spontaneous
  Country: US (occurrence: US)
  Receive Date: 20120917
  Receipt Date: 20130730
  Transmission Date: 20140515
  Serious: No
  Sender: FDA-Public Use
  Company Number: US-009507513-1208USA011875

PATIENT
  Sex: Female

DRUGS (6)
  1. PEGINTRON [Suspect]
     Dosage: 80 MCG/0.5 ML, QW
     Route: 058
     Dates: end: 20130601
  2. RIBAVIRIN [Suspect]
     Dosage: UNK
     Route: 048
     Dates: end: 20130601
  3. INCIVEK [Suspect]
     Dosage: 750 MG, TID
     Route: 048
  4. ZOLOFT [Concomitant]
     Dosage: UNK
     Route: 048
  5. PROMETHAZINE [Concomitant]
     Dosage: UNK
     Route: 048
  6. BENADRYL [Concomitant]
     Route: 048

REACTIONS (9)
  - Fatigue [Unknown]
  - Nausea [Unknown]
  - Anaemia [Unknown]
  - Blood urea increased [Unknown]
  - Blood creatine increased [Unknown]
  - Red blood cell count decreased [Unknown]
  - Depressed mood [Recovering/Resolving]
  - Weight decreased [Unknown]
  - Blood glucose fluctuation [Unknown]
